FAERS Safety Report 10642406 (Version 1)
Quarter: 2014Q4

REPORT INFORMATION
  Report Type: Spontaneous
  Country: US (occurrence: None)
  Receive Date: 20141208
  Receipt Date: 20141208
  Transmission Date: 20150529
  Serious: No
  Sender: FDA-Public Use
  Company Number: None

PATIENT
  Age: 2 Year
  Sex: Male
  Weight: 15.88 kg

DRUGS (1)
  1. TAMIFLU [Suspect]
     Active Substance: OSELTAMIVIR PHOSPHATE
     Indication: RESPIRATORY SYNCYTIAL VIRUS INFECTION

REACTIONS (4)
  - Screaming [None]
  - Aggression [None]
  - Psychotic disorder [None]
  - Delirium [None]

NARRATIVE: CASE EVENT DATE: 20140203
